FAERS Safety Report 20510198 (Version 2)
Quarter: 2022Q1

REPORT INFORMATION
  Report Type: Spontaneous
  Country: US (occurrence: US)
  Receive Date: 20220224
  Receipt Date: 20220318
  Transmission Date: 20220423
  Serious: Yes (Other)
  Sender: FDA-Public Use
  Company Number: US-SANOFI-00981151

PATIENT
  Age: 81 Year
  Sex: Female

DRUGS (3)
  1. MULTAQ [Suspect]
     Active Substance: DRONEDARONE
     Indication: Atrial fibrillation
     Dosage: 200 MG, Q12H
     Route: 048
     Dates: start: 202110
  2. METOPROLOL [Concomitant]
     Active Substance: METOPROLOL
     Dosage: UNK
     Route: 048
  3. ELIQUIS [Concomitant]
     Active Substance: APIXABAN
     Dosage: UNK

REACTIONS (11)
  - Macular degeneration [Unknown]
  - Dyspnoea [Unknown]
  - Gait disturbance [Unknown]
  - Weight increased [Not Recovered/Not Resolved]
  - Breast pain [Not Recovered/Not Resolved]
  - Adverse drug reaction [Unknown]
  - Feeling abnormal [Unknown]
  - Joint swelling [Unknown]
  - Pollakiuria [Unknown]
  - Peripheral swelling [Unknown]
  - Fatigue [Unknown]
